FAERS Safety Report 13649333 (Version 5)
Quarter: 2018Q3

REPORT INFORMATION
  Report Type: Spontaneous
  Country: IT (occurrence: IT)
  Receive Date: 20170613
  Receipt Date: 20180711
  Transmission Date: 20181010
  Serious: Yes (Life-Threatening, Hospitalization, Other)
  Sender: FDA-Public Use
  Company Number: PHHY2017IT082985

PATIENT
  Age: 63 Year
  Sex: Female

DRUGS (2)
  1. HYDROCHLOROTHIAZIDE. [Suspect]
     Active Substance: HYDROCHLOROTHIAZIDE
     Indication: OEDEMA PERIPHERAL
     Dosage: 25 MG, ONE PILL (TOTAL DOSE: 1 MCG/L)
     Route: 065
  2. LEVOTHYROXINE. [Concomitant]
     Active Substance: LEVOTHYROXINE
     Indication: AUTOIMMUNE THYROIDITIS
     Dosage: UNK
     Route: 065

REACTIONS (12)
  - Asthenia [Unknown]
  - Dyspnoea [Recovering/Resolving]
  - Procalcitonin increased [Recovered/Resolved]
  - Rales [Recovering/Resolving]
  - Pyrexia [Recovered/Resolved]
  - Nausea [Unknown]
  - Pulmonary oedema [Recovering/Resolving]
  - Sinus tachycardia [Unknown]
  - Chills [Recovering/Resolving]
  - Pulmonary toxicity [Recovering/Resolving]
  - Vomiting [Unknown]
  - Cyanosis [Unknown]
